FAERS Safety Report 6886171-6 (Version None)
Quarter: 2010Q3

REPORT INFORMATION
  Report Type: 
  Country: None (occurrence: None)
  Receive Date: 20100729
  Receipt Date: 20080825
  Transmission Date: 20110219
  Serious: Yes (Other)
  Sender: FDA-Public Use
  Company Number: US-PFIZER INC-2008054945

PATIENT
  Sex: Male
  Weight: 113.63 kg

DRUGS (2)
  1. CELEBREX [Suspect]
     Indication: ARTHROPATHY
     Route: 048
     Dates: start: 20080601
  2. CELEBREX [Suspect]
     Indication: OSTEOARTHRITIS

REACTIONS (1)
  - OEDEMA PERIPHERAL [None]
